FAERS Safety Report 13294335 (Version 2)
Quarter: 2017Q2

REPORT INFORMATION
  Report Type: Spontaneous
  Country: IT (occurrence: IT)
  Receive Date: 20170303
  Receipt Date: 20170417
  Transmission Date: 20170830
  Serious: Yes (Hospitalization)
  Sender: FDA-Public Use
  Company Number: IT-ELI_LILLY_AND_COMPANY-IT201702010040

PATIENT
  Age: 78 Year
  Sex: Female

DRUGS (1)
  1. INSULIN GLARGINE [Suspect]
     Active Substance: INSULIN GLARGINE
     Indication: DIABETES MELLITUS
     Dosage: UNK UNK, QD
     Route: 058

REACTIONS (2)
  - Hypoglycaemia [Unknown]
  - Cold sweat [Unknown]

NARRATIVE: CASE EVENT DATE: 20160913
